FAERS Safety Report 8112570-0 (Version None)
Quarter: 2012Q1

REPORT INFORMATION
  Report Type: 
  Country: None (occurrence: None)
  Receive Date: 20120203
  Receipt Date: 20120127
  Transmission Date: 20120608
  Serious: Yes (Other)
  Sender: FDA-Public Use
  Company Number: DE-ROCHE-1034978

PATIENT
  Age: 55 Year
  Sex: Male

DRUGS (1)
  1. HERCEPTIN [Suspect]
     Indication: METASTATIC GASTRIC CANCER

REACTIONS (1)
  - PULMONARY EMBOLISM [None]
